FAERS Safety Report 7915310-0 (Version None)
Quarter: 2011Q4

REPORT INFORMATION
  Report Type: 
  Country: None (occurrence: None)
  Receive Date: 20111115
  Receipt Date: 20110621
  Transmission Date: 20120403
  Serious: No
  Sender: FDA-Public Use
  Company Number: US-BAYER-2011-079512

PATIENT
  Age: 79 Year
  Sex: Female
  Weight: 82 kg

DRUGS (17)
  1. FUROSEMIDE [Concomitant]
  2. DILTIAZEM HCL [Concomitant]
  3. VITAMIN D [Concomitant]
  4. ACETYLSALICYLIC ACID SRT [Concomitant]
  5. LYRICA [Concomitant]
  6. OMEPRAZOLE [Concomitant]
  7. EYE DROPS [Concomitant]
  8. BENICAR [Concomitant]
  9. JANTOVEN [Concomitant]
  10. DIGOXIN [Concomitant]
  11. IMODIUM [Concomitant]
  12. MECLIZINE [Concomitant]
  13. ACETAMINOPHEN [Concomitant]
  14. LIDOCAINE HCL [Suspect]
     Indication: INFECTION
  15. SODIUM CHLORIDE [Concomitant]
  16. SIMVASTATIN [Concomitant]
  17. METOPROLOL TARTRATE [Concomitant]

REACTIONS (1)
  - THERAPEUTIC RESPONSE UNEXPECTED [None]
